FAERS Safety Report 8987302 (Version 2)
Quarter: 2013Q1

REPORT INFORMATION
  Report Type: Spontaneous
  Country: KW (occurrence: KW)
  Receive Date: 20121226
  Receipt Date: 20130129
  Transmission Date: 20140127
  Serious: Yes (Other)
  Sender: FDA-Public Use
  Company Number: KW-ROCHE-1174307

PATIENT
  Age: 50 Year
  Sex: Female

DRUGS (4)
  1. HERCEPTIN [Suspect]
     Indication: BREAST CANCER
     Route: 065
     Dates: start: 20121016, end: 20121127
  2. DENOSUMAB [Concomitant]
  3. TAXOL [Concomitant]
     Route: 065
     Dates: start: 20120914, end: 20121127
  4. INSULIN [Concomitant]
     Route: 065

REACTIONS (1)
  - Ventricular tachycardia [Recovered/Resolved]
